FAERS Safety Report 21438174 (Version 2)
Quarter: 2022Q4

REPORT INFORMATION
  Report Type: Spontaneous
  Country: None (occurrence: US)
  Receive Date: 20221011
  Receipt Date: 20221117
  Transmission Date: 20230112
  Serious: No
  Sender: FDA-Public Use
  Company Number: US-Ajanta Pharma USA Inc.-2133649

PATIENT
  Age: 74 Year
  Sex: Female
  Weight: 72.727 kg

DRUGS (1)
  1. CHOLESTYRAMINE [Suspect]
     Active Substance: CHOLESTYRAMINE
     Indication: Bile acid malabsorption
     Route: 048
     Dates: start: 20220930

REACTIONS (5)
  - Product physical consistency issue [Recovered/Resolved]
  - Foreign body in throat [Recovering/Resolving]
  - Product use complaint [Recovering/Resolving]
  - Product solubility abnormal [Recovering/Resolving]
  - Off label use [Not Recovered/Not Resolved]

NARRATIVE: CASE EVENT DATE: 20220930
